FAERS Safety Report 24453632 (Version 2)
Quarter: 2024Q4

REPORT INFORMATION
  Report Type: Report from Study
  Country: US (occurrence: US)
  Receive Date: 20241017
  Receipt Date: 20241018
  Transmission Date: 20250115
  Serious: No
  Sender: ROCHE
  Company Number: US-ROCHE-3292535

PATIENT
  Age: 48 Year
  Sex: Female
  Weight: 64.41 kg

DRUGS (6)
  1. RITUXAN [Suspect]
     Active Substance: RITUXIMAB
     Indication: Scleroderma
     Dosage: LAST DOSE /NOV/2022 ADMINISTER 1000 MG IV ON DAY 1 AND 15 THEN ONCE IN 6 MONTHS.
     Route: 041
     Dates: start: 202204
  2. RITUXAN [Suspect]
     Active Substance: RITUXIMAB
     Indication: Interstitial lung disease
     Dosage: SINGLE-USE VIAL
     Route: 041
     Dates: start: 20230227
  3. RITUXAN [Suspect]
     Active Substance: RITUXIMAB
     Indication: Connective tissue disorder
  4. RITUXAN [Suspect]
     Active Substance: RITUXIMAB
     Indication: Systemic scleroderma
  5. SYNTHROID [Concomitant]
     Active Substance: LEVOTHYROXINE SODIUM
  6. VIAGRA [Concomitant]
     Active Substance: SILDENAFIL CITRATE

REACTIONS (2)
  - Off label use [Unknown]
  - No adverse event [Unknown]

NARRATIVE: CASE EVENT DATE: 20220401
